FAERS Safety Report 13839204 (Version 1)
Quarter: 2017Q3

REPORT INFORMATION
  Report Type: Spontaneous
  Country: US (occurrence: US)
  Receive Date: 20170806
  Receipt Date: 20170806
  Transmission Date: 20171127
  Serious: No
  Sender: FDA-Public Use
  Company Number: None

PATIENT
  Sex: Female
  Weight: 65.25 kg

DRUGS (3)
  1. PROAIR RESPICLICK [Suspect]
     Active Substance: ALBUTEROL SULFATE
     Indication: ASTHMA
     Dosage: QUANTITY:200 INHALATION(S);?
     Route: 048
     Dates: start: 20170718, end: 20170804
  2. ESSENTIAL OILS. [Concomitant]
     Active Substance: ESSENTIAL OILS
  3. PROAIR HFA [Concomitant]
     Active Substance: ALBUTEROL SULFATE

REACTIONS (4)
  - Rash [None]
  - Erythema nodosum [None]
  - Urticaria [None]
  - Product formulation issue [None]

NARRATIVE: CASE EVENT DATE: 20170805
